FAERS Safety Report 15859540 (Version 1)
Quarter: 2019Q1

REPORT INFORMATION
  Report Type: Spontaneous
  Country: DE (occurrence: DE)
  Receive Date: 20190123
  Receipt Date: 20190123
  Transmission Date: 20190417
  Serious: Yes (Other)
  Sender: FDA-Public Use
  Company Number: PHHY2019DE014270

PATIENT
  Age: 39 Year
  Sex: Female

DRUGS (1)
  1. GILENYA [Suspect]
     Active Substance: FINGOLIMOD HYDROCHLORIDE
     Indication: MULTIPLE SCLEROSIS
     Dosage: 0.5 MG, UNK
     Route: 065
     Dates: start: 20171207, end: 20180205

REACTIONS (4)
  - Impaired healing [Recovering/Resolving]
  - Epigastric discomfort [Recovering/Resolving]
  - Cholelithiasis [Recovering/Resolving]
  - Wound dehiscence [Recovering/Resolving]
